FAERS Safety Report 15226529 (Version 1)
Quarter: 2018Q3

REPORT INFORMATION
  Report Type: Spontaneous
  Country: US (occurrence: US)
  Receive Date: 20180706
  Receipt Date: 20180706
  Transmission Date: 20181010
  Serious: Yes (Hospitalization)
  Sender: FDA-Public Use
  Company Number: None

PATIENT
  Age: 33 Year
  Sex: Female

DRUGS (5)
  1. LETROZOLE. [Concomitant]
     Active Substance: LETROZOLE
  2. MULITI VIT [Concomitant]
  3. IBRANCE [Suspect]
     Active Substance: PALBOCICLIB
     Indication: BREAST CANCER FEMALE
     Route: 048
     Dates: start: 20170317
  4. VITAMIN C [Concomitant]
     Active Substance: ASCORBIC ACID
  5. LFUOXETINE [Concomitant]

REACTIONS (1)
  - Seizure [None]

NARRATIVE: CASE EVENT DATE: 20180630
